FAERS Safety Report 8582068-4 (Version None)
Quarter: 2012Q3

REPORT INFORMATION
  Report Type: 
  Country: None (occurrence: None)
  Receive Date: 20120809
  Receipt Date: 20120806
  Transmission Date: 20120928
  Serious: Yes (Other)
  Sender: FDA-Public Use
  Company Number: US-PFIZER INC-2012108763

PATIENT
  Age: 61 Year
  Sex: Male
  Weight: 88.4 kg

DRUGS (6)
  1. DIGOXIN [Concomitant]
     Indication: CARDIAC DISORDER
     Dosage: 0.25 MG, DAILY
  2. METOPROLOL [Concomitant]
     Indication: HYPERTENSION
     Dosage: 50 MG, 2X/DAY
  3. PLAVIX [Concomitant]
     Dosage: UNK
  4. SIMVASTATIN [Concomitant]
     Indication: BLOOD CHOLESTEROL INCREASED
     Dosage: 20 MG, DAILY
  5. METFORMIN [Concomitant]
     Indication: DIABETES MELLITUS
     Dosage: 500 MG, DAILY
  6. SUTENT [Suspect]
     Indication: RENAL CELL CARCINOMA
     Dosage: 50 MG, DAILY
     Route: 048
     Dates: start: 20111214, end: 20120503

REACTIONS (6)
  - CARDIAC DISORDER [None]
  - MALAISE [None]
  - RASH [None]
  - TESTICULAR SWELLING [None]
  - TESTICULAR PAIN [None]
  - LYMPHADENOPATHY [None]
